FAERS Safety Report 5055614-5 (Version None)
Quarter: 2006Q3

REPORT INFORMATION
  Report Type: 
  Country: None (occurrence: None)
  Receive Date: 20060719
  Receipt Date: 20060407
  Transmission Date: 20061208
  Serious: No
  Sender: FDA-Public Use
  Company Number: US-AMGEN-US175449

PATIENT
  Sex: Male

DRUGS (6)
  1. EPOGEN [Suspect]
     Indication: PRE-EXISTING DISEASE
     Dates: start: 20050101
  2. NEULASTA [Suspect]
  3. MEDICINALPRODUCT NOT SPECIFIED BY SENDER [Concomitant]
  4. MEDICINALPRODUCT NOT SPECIFIED BY SENDER [Concomitant]
  5. MEDICINALPRODUCT NOT SPECIFIED BY SENDER [Concomitant]
  6. MEDICINALPRODUCT NOT SPECIFIED BY SENDER [Concomitant]

REACTIONS (3)
  - HAEMOGLOBIN DECREASED [None]
  - PRURITUS [None]
  - TINNITUS [None]
